FAERS Safety Report 6893078-7 (Version None)
Quarter: 2010Q3

REPORT INFORMATION
  Report Type: 
  Country: None (occurrence: None)
  Receive Date: 20100731
  Receipt Date: 20090409
  Transmission Date: 20110219
  Serious: Yes (Other)
  Sender: FDA-Public Use
  Company Number: US-PFIZER INC-2008089966

PATIENT
  Sex: Female
  Weight: 56.236 kg

DRUGS (4)
  1. GABAPENTIN [Suspect]
     Indication: BACK PAIN
     Dosage: 300 MG, ONE IN THE MORNING, TWO AT BEDTIME
     Route: 048
     Dates: start: 20081001, end: 20081022
  2. GABAPENTIN [Suspect]
     Indication: CERVICAL SPINAL STENOSIS
  3. GABAPENTIN [Suspect]
     Indication: ARTHROPATHY
  4. GABAPENTIN [Suspect]
     Indication: MYALGIA

REACTIONS (1)
  - DRUG INEFFECTIVE [None]
